FAERS Safety Report 10420574 (Version 1)
Quarter: 2014Q2

REPORT INFORMATION
  Report Type: Spontaneous
  Country: US (occurrence: None)
  Receive Date: 20140627
  Receipt Date: 20140627
  Transmission Date: 20141212
  Serious: Yes (Other)
  Sender: FDA-Public Use
  Company Number: PHEH2013US016600

PATIENT
  Age: 71 Year
  Sex: Female

DRUGS (2)
  1. DIOVAN HCT (VALSARTAN, HYDROCHLOROTHIAZIDE) UNKNOWN [Suspect]
  2. DIOVAN HCT (VALSARTAN, HYDROCHLOROTHIAZIDE) UNKNOWN [Suspect]

REACTIONS (5)
  - Hypertension [None]
  - Mood altered [None]
  - Agitation [None]
  - Dizziness [None]
  - Fatigue [None]
